FAERS Safety Report 7639183-9 (Version None)
Quarter: 2011Q3

REPORT INFORMATION
  Report Type: 
  Country: None (occurrence: None)
  Receive Date: 20110725
  Receipt Date: 20110725
  Transmission Date: 20111222
  Serious: Yes (Hospitalization)
  Sender: FDA-Public Use
  Company Number: None

PATIENT
  Age: 54 Year
  Sex: Female
  Weight: 93.2 kg

DRUGS (2)
  1. DILTIAZEM [Suspect]
     Indication: HYPERTENSION
     Dosage: 300MG EVERY DAY PO
     Route: 048
     Dates: start: 20091030, end: 20110603
  2. SALSALATE [Suspect]
     Indication: PAIN
     Dosage: 1500MG BID PO
     Route: 048
     Dates: start: 20100901, end: 20110603

REACTIONS (5)
  - THROAT IRRITATION [None]
  - THROAT TIGHTNESS [None]
  - SPEECH DISORDER [None]
  - PHARYNGEAL OEDEMA [None]
  - DYSPHAGIA [None]
